FAERS Safety Report 11169538 (Version 2)
Quarter: 2019Q4

REPORT INFORMATION
  Report Type: Report from Study
  Country: US (occurrence: US)
  Receive Date: 20150605
  Receipt Date: 20191110
  Transmission Date: 20200122
  Serious: Yes (Hospitalization)
  Sender: FDA-Public Use
  Company Number: PHHO2015US009998

PATIENT
  Age: 79 Year
  Sex: Male
  Weight: 74.4 kg

DRUGS (2)
  1. ZORTRESS [Suspect]
     Active Substance: EVEROLIMUS
     Dosage: UNK
     Route: 048
     Dates: start: 20140301
  2. ZORTRESS [Suspect]
     Active Substance: EVEROLIMUS
     Indication: LYMPHOMA
     Dosage: UNK
     Route: 048
     Dates: start: 20140123, end: 20140207

REACTIONS (5)
  - Pruritus [Recovered/Resolved]
  - Chills [Recovered/Resolved]
  - Myalgia [Recovered/Resolved]
  - Pyrexia [Recovered/Resolved]
  - Neutropenia [Recovered/Resolved]

NARRATIVE: CASE EVENT DATE: 20140207
